FAERS Safety Report 19846748 (Version 2)
Quarter: 2021Q4

REPORT INFORMATION
  Report Type: Spontaneous
  Country: US (occurrence: US)
  Receive Date: 20210917
  Receipt Date: 20211005
  Transmission Date: 20220303
  Serious: Yes (Death, Hospitalization)
  Sender: FDA-Public Use
  Company Number: US-PFIZER INC-202101181365

PATIENT
  Sex: Female
  Weight: .68 kg

DRUGS (2)
  1. AMPICILLIN [Suspect]
     Active Substance: AMPICILLIN
     Indication: Prophylaxis
     Dosage: UNK, 3 DOSES
     Route: 064
  2. DEXAMETHASONE [Suspect]
     Active Substance: DEXAMETHASONE
     Indication: Maternal therapy to enhance foetal lung maturity
     Dosage: UNK, 2 DOSES
     Route: 064

REACTIONS (4)
  - Pathogen resistance [Fatal]
  - Morganella infection [Fatal]
  - Maternal exposure during pregnancy [Fatal]
  - Premature baby [Fatal]
